FAERS Safety Report 20160691 (Version 1)
Quarter: 2021Q4

REPORT INFORMATION
  Report Type: Spontaneous
  Country: US (occurrence: US)
  Receive Date: 20211208
  Receipt Date: 20211208
  Transmission Date: 20220303
  Serious: Yes (Hospitalization, Other)
  Sender: FDA-Public Use
  Company Number: US-SLATE RUN PHARMACEUTICALS-21US000820

PATIENT

DRUGS (6)
  1. DICYCLOMINE HYDROCHLORIDE [Interacting]
     Active Substance: DICYCLOMINE HYDROCHLORIDE
     Indication: Helicobacter infection
     Dosage: UNK
  2. NICOTINE [Interacting]
     Active Substance: NICOTINE
     Indication: Tobacco abuse
     Dosage: UNK
     Route: 003
  3. NICOTINE [Interacting]
     Active Substance: NICOTINE
     Dosage: UNK
  4. CLARITHROMYCIN [Concomitant]
     Active Substance: CLARITHROMYCIN
     Indication: Helicobacter infection
     Dosage: UNK
  5. AMOXICILLIN [Concomitant]
     Active Substance: AMOXICILLIN
     Indication: Helicobacter infection
  6. PROTONIX [Concomitant]
     Active Substance: PANTOPRAZOLE SODIUM
     Indication: Helicobacter infection

REACTIONS (3)
  - Pancreatitis acute [Recovered/Resolved]
  - Tobacco interaction [Recovered/Resolved]
  - Off label use [Recovered/Resolved]
